FAERS Safety Report 19306114 (Version 2)
Quarter: 2022Q1

REPORT INFORMATION
  Report Type: Spontaneous
  Country: CA (occurrence: None)
  Receive Date: 20210526
  Receipt Date: 20220202
  Transmission Date: 20220424
  Serious: Yes (Hospitalization)
  Sender: FDA-Public Use
  Company Number: 2021A450010

PATIENT
  Age: 86 Year
  Sex: Female
  Weight: 81 kg

DRUGS (22)
  1. ONGLYZA [Suspect]
     Active Substance: SAXAGLIPTIN HYDROCHLORIDE
     Indication: Diabetes mellitus
     Route: 048
     Dates: start: 20200727, end: 20201207
  2. JUBLIA [Concomitant]
     Active Substance: EFINACONAZOLE
  3. LEVEMIR [Concomitant]
     Active Substance: INSULIN DETEMIR
     Dosage: 26 UNITS
     Route: 058
  4. ACETAMINOPHEN [Concomitant]
     Active Substance: ACETAMINOPHEN
  5. ALENDRONATE [Concomitant]
     Active Substance: ALENDRONATE SODIUM
  6. ASPIRIN [Concomitant]
     Active Substance: ASPIRIN
  7. ATORVASTATIN [Concomitant]
     Active Substance: ATORVASTATIN
  8. BISOPROLOL [Concomitant]
     Active Substance: BISOPROLOL
  9. CALCIUM [Concomitant]
     Active Substance: CALCIUM
  10. CHOLECALCIFEROL [Concomitant]
     Active Substance: CHOLECALCIFEROL
     Dosage: 400
  11. DOCUSATE SODIUM [Concomitant]
     Active Substance: DOCUSATE SODIUM
  12. EZETIMIBE [Concomitant]
     Active Substance: EZETIMIBE
  13. GLICLAZIDE [Concomitant]
     Active Substance: GLICLAZIDE
  14. ISOSORBIDE MONONITRATE [Concomitant]
     Active Substance: ISOSORBIDE MONONITRATE
  15. METFORMIN [Concomitant]
     Active Substance: METFORMIN HYDROCHLORIDE
  16. MOMETASONE FUROATE [Concomitant]
     Active Substance: MOMETASONE FUROATE
     Route: 061
  17. MOXIFLOXACIN [Concomitant]
     Active Substance: MOXIFLOXACIN
     Dosage: 400 MG OD X 5 DAYS
  18. PANTOPRAZOLE [Concomitant]
     Active Substance: PANTOPRAZOLE
  19. SOLIFENACIN [Concomitant]
     Active Substance: SOLIFENACIN
  20. VALSARTAN [Concomitant]
     Active Substance: VALSARTAN
  21. INDAPAMIDE [Concomitant]
     Active Substance: INDAPAMIDE
  22. DOCUSATE SODIUM [Concomitant]
     Active Substance: DOCUSATE SODIUM
     Dosage: 100-200 MG

REACTIONS (3)
  - Abdominal pain [Recovering/Resolving]
  - Lipase increased [Recovering/Resolving]
  - Subacute pancreatitis [Recovering/Resolving]

NARRATIVE: CASE EVENT DATE: 20201205
